FAERS Safety Report 4518403-3 (Version None)
Quarter: 2004Q4

REPORT INFORMATION
  Report Type: 
  Country: None (occurrence: None)
  Receive Date: 20041203
  Receipt Date: 20030905
  Transmission Date: 20050328
  Serious: Yes (Death, Hospitalization, Other)
  Sender: FDA-Public Use
  Company Number: PHFR2003GB03514

PATIENT
  Age: 22 Year
  Sex: Male

DRUGS (4)
  1. CLOZARIL [Suspect]
     Indication: SCHIZOPHRENIA
     Dosage: 900MG/DAY
     Route: 048
     Dates: start: 20000725, end: 20030901
  2. AMISULPRIDE [Concomitant]
     Indication: SCHIZOPHRENIA
     Dosage: 400MG/DAY
     Route: 048
     Dates: start: 20011220
  3. OMEPRAZOLE [Concomitant]
     Indication: DUODENAL ULCER
     Dosage: 20MG/DAY
     Route: 048
     Dates: start: 20010904
  4. LAXATIVES [Concomitant]
     Route: 065

REACTIONS (17)
  - ABDOMINAL PAIN [None]
  - ASTHENIA [None]
  - BRADYCARDIA [None]
  - CIRCULATORY COLLAPSE [None]
  - COLON GANGRENE [None]
  - COLONIC HAEMORRHAGE [None]
  - CONSTIPATION [None]
  - CRYING [None]
  - DYSPNOEA [None]
  - FAECALOMA [None]
  - GENERAL PHYSICAL HEALTH DETERIORATION [None]
  - INTESTINAL INFARCTION [None]
  - INTESTINAL ISCHAEMIA [None]
  - LOSS OF CONSCIOUSNESS [None]
  - PYREXIA [None]
  - URINARY TRACT INFECTION [None]
  - VOMITING [None]
